FAERS Safety Report 17130788 (Version 1)
Quarter: 2019Q4

REPORT INFORMATION
  Report Type: Spontaneous
  Country: CZ (occurrence: CZ)
  Receive Date: 20191209
  Receipt Date: 20191209
  Transmission Date: 20200122
  Serious: Yes (Hospitalization, Other)
  Sender: FDA-Public Use
  Company Number: CZ-AMGEN-CZESP2019202179

PATIENT
  Age: 70 Year
  Sex: Male

DRUGS (3)
  1. XGEVA [Suspect]
     Active Substance: DENOSUMAB
     Indication: METASTASES TO BONE
     Dosage: UNK
     Route: 065
     Dates: end: 2018
  2. PEMETREXED. [Concomitant]
     Active Substance: PEMETREXED
     Indication: NON-SMALL CELL LUNG CANCER
  3. CDDP [Concomitant]
     Active Substance: CISPLATIN
     Indication: NON-SMALL CELL LUNG CANCER

REACTIONS (6)
  - Hyperthyroidism [Unknown]
  - Hypothyroidism [Unknown]
  - Tooth loss [Unknown]
  - Neoplasm progression [Recovering/Resolving]
  - Osteonecrosis of jaw [Unknown]
  - Metastases to muscle [Recovering/Resolving]

NARRATIVE: CASE EVENT DATE: 2017
